FAERS Safety Report 15413552 (Version 5)
Quarter: 2019Q1

REPORT INFORMATION
  Report Type: Report from Study
  Country: CA (occurrence: CA)
  Receive Date: 20180921
  Receipt Date: 20190128
  Transmission Date: 20190417
  Serious: Yes (Hospitalization)
  Sender: FDA-Public Use
  Company Number: CA-JNJFOC-20180917204

PATIENT
  Age: 16 Year
  Sex: Male
  Weight: 100.5 kg

DRUGS (2)
  1. REMICADE [Suspect]
     Active Substance: INFLIXIMAB
     Indication: INFLAMMATORY BOWEL DISEASE
     Route: 042
     Dates: start: 20160927, end: 20170407
  2. ENTYVIO [Concomitant]
     Active Substance: VEDOLIZUMAB
     Route: 065
     Dates: start: 20170426

REACTIONS (2)
  - Postoperative ileus [Recovered/Resolved]
  - Inflammatory bowel disease [Recovered/Resolved with Sequelae]

NARRATIVE: CASE EVENT DATE: 20180912
